FAERS Safety Report 19523695 (Version 1)
Quarter: 2021Q3

REPORT INFORMATION
  Report Type: Spontaneous
  Country: GB (occurrence: GB)
  Receive Date: 20210713
  Receipt Date: 20210713
  Transmission Date: 20211014
  Serious: Yes (Other)
  Sender: FDA-Public Use
  Company Number: GB-AUROBINDO-AUR-APL-2021-029093

PATIENT
  Age: 24 Year
  Sex: Male
  Weight: 128 kg

DRUGS (1)
  1. METFORMIN [Suspect]
     Active Substance: METFORMIN HYDROCHLORIDE
     Indication: DIABETES MELLITUS
     Dosage: 500
     Route: 048
     Dates: start: 20210601, end: 20210628

REACTIONS (1)
  - Restless legs syndrome [Recovering/Resolving]

NARRATIVE: CASE EVENT DATE: 20210620
